FAERS Safety Report 4761310-1 (Version None)
Quarter: 2005Q3

REPORT INFORMATION
  Report Type: 
  Country: None (occurrence: None)
  Receive Date: 20050906
  Receipt Date: 20050826
  Transmission Date: 20060218
  Serious: Yes (Other)
  Sender: FDA-Public Use
  Company Number: PHEH2005US09609

PATIENT
  Age: 73 Year
  Sex: Female

DRUGS (3)
  1. LOTREL [Suspect]
     Indication: HYPERTENSION
  2. EVISTA [Concomitant]
  3. CODEINE [Concomitant]

REACTIONS (3)
  - CONTUSION [None]
  - DIZZINESS [None]
  - SYNCOPE [None]
